FAERS Safety Report 8784105 (Version 2)
Quarter: 2012Q4

REPORT INFORMATION
  Report Type: 
  Country: SG (occurrence: SG)
  Receive Date: 20120913
  Receipt Date: 20120929
  Transmission Date: 20130627
  Serious: Yes (Hospitalization)
  Sender: FDA-Public Use
  Company Number: SG-009507513-1208SGP011681

PATIENT
  Age: 52 Year
  Sex: Male
  Weight: 60 kg

DRUGS (14)
  1. INTEGRILIN [Suspect]
     Indication: ACUTE MYOCARDIAL INFARCTION
     Dosage: 6.2 ml, Once
     Route: 022
     Dates: start: 20120827
  2. INTEGRILIN [Suspect]
     Dosage: 6.2 ml, Once
     Route: 022
     Dates: start: 20120827
  3. INTEGRILIN [Suspect]
     Dosage: 12.4 ml, Once
     Route: 042
     Dates: start: 20120827, end: 20120828
  4. ASPIRIN [Concomitant]
     Indication: ACUTE MYOCARDIAL INFARCTION
     Dosage: 100 mg, UNK
     Route: 048
     Dates: start: 20120827, end: 20120828
  5. PLAVIX [Concomitant]
     Indication: ACUTE MYOCARDIAL INFARCTION
     Dosage: 75 mg, UNK
     Route: 048
     Dates: start: 20120827, end: 20120828
  6. SIMVASTATIN [Concomitant]
     Indication: ACUTE MYOCARDIAL INFARCTION
     Dosage: 40 mg, UNK
     Route: 048
     Dates: start: 20120827, end: 20120828
  7. NITROGLYCERIN [Concomitant]
     Dosage: 100 mg, Once
     Route: 013
     Dates: start: 20120827
  8. CLEXANE (ENOXAPARIN SODIUM) [Concomitant]
     Dosage: 5.6 ml, Once
     Route: 013
     Dates: start: 20120827
  9. SODIUM CHLORIDE [Concomitant]
     Dosage: 500 ml, Once
     Route: 042
     Dates: start: 20120827
  10. ATROPINE [Concomitant]
     Dosage: 1.2 ml, Once
     Route: 042
     Dates: start: 20120827
  11. DOPAMINE HYDROCHLORIDE [Concomitant]
     Dosage: UNK, Once
     Route: 042
     Dates: start: 20120827
  12. DOPAMINE HYDROCHLORIDE [Concomitant]
     Dosage: UNK, Once
     Route: 042
     Dates: start: 20120827
  13. DOPAMINE HYDROCHLORIDE [Concomitant]
     Dosage: UNK, Once
     Route: 042
     Dates: start: 20120827
  14. MAXOLON [Concomitant]
     Dosage: 10 mg, UNK
     Route: 042
     Dates: start: 20120827

REACTIONS (4)
  - Upper gastrointestinal haemorrhage [Recovering/Resolving]
  - Haemoptysis [Recovering/Resolving]
  - Haematemesis [Recovering/Resolving]
  - Thrombocytopenia [Recovering/Resolving]
